FAERS Safety Report 4320814-6 (Version None)
Quarter: 2004Q1

REPORT INFORMATION
  Report Type: 
  Country: None (occurrence: None)
  Receive Date: 20040315
  Receipt Date: 20030626
  Transmission Date: 20041129
  Serious: Yes (Other)
  Sender: FDA-Public Use
  Company Number: OHEH2003US05489

PATIENT
  Age: 58 Year
  Sex: Male
  Weight: 102.9 kg

DRUGS (10)
  1. TRILEPTAL [Suspect]
     Indication: NEUROPATHIC PAIN
     Dosage: 300 MG, BID, ORAL
     Route: 048
     Dates: start: 20030324, end: 20030424
  2. TIAZAC [Concomitant]
  3. VIOXX [Concomitant]
  4. DOXEPIN (DOXEPIN) [Concomitant]
  5. GLUCOPHAGE [Concomitant]
  6. LIPITOR [Concomitant]
  7. ZESTRIL [Concomitant]
  8. NEURONTIN [Concomitant]
  9. GUAIFENESIN [Concomitant]
  10. PLAVIX [Concomitant]

REACTIONS (1)
  - BLOOD SODIUM DECREASED [None]
